FAERS Safety Report 8366940-6 (Version None)
Quarter: 2012Q2

REPORT INFORMATION
  Report Type: 
  Country: None (occurrence: None)
  Receive Date: 20120515
  Receipt Date: 20120515
  Transmission Date: 20120825
  Serious: Yes (Hospitalization, Other)
  Sender: FDA-Public Use
  Company Number: None

PATIENT
  Age: 53 Year
  Sex: Male
  Weight: 72.1219 kg

DRUGS (2)
  1. DRISDOL [Suspect]
     Indication: PRODUCT USED FOR UNKNOWN INDICATION
     Dosage: 50,000 UNITS 2X WEEK
     Dates: start: 20110216, end: 20110222
  2. VT D2 1.25 MG (50,000 UNIT) PLIVA, INC [Suspect]

REACTIONS (1)
  - DYSURIA [None]
